FAERS Safety Report 8376994-9 (Version None)
Quarter: 2012Q2

REPORT INFORMATION
  Report Type: 
  Country: None (occurrence: None)
  Receive Date: 20120518
  Receipt Date: 20120503
  Transmission Date: 20120825
  Serious: Yes (Life-Threatening, Hospitalization, Other)
  Sender: FDA-Public Use
  Company Number: 2012HGS-003595

PATIENT
  Age: 45 Year
  Sex: Female
  Weight: 72 kg

DRUGS (7)
  1. CALCIUM CARBONICUM (CALCIUM CARBONATE) (CALCIUM CARBONATE) [Concomitant]
  2. MELOXICAM [Concomitant]
  3. OMEPRAZOLE [Concomitant]
  4. AZATHIOPRIN (AZATHIOPRINE) (AZATHIOPRINE) [Concomitant]
  5. METHYLPREDNISOLON (METHYLPREDNISOLONE) (METHYLPREDNISOLONE) [Concomitant]
  6. HYDROXYCHLOROQUINE SULFATE [Concomitant]
  7. BELIMUMAB [Suspect]
     Indication: SYSTEMIC LUPUS ERYTHEMATOSUS
     Dosage: INTRAVENOUS DRIP
     Route: 041
     Dates: start: 20090827

REACTIONS (4)
  - ANAEMIA [None]
  - APPENDICITIS [None]
  - OVARIAN NEOPLASM [None]
  - PERITONITIS [None]
